FAERS Safety Report 5858231-X (Version None)
Quarter: 2008Q3

REPORT INFORMATION
  Report Type: 
  Country: None (occurrence: None)
  Receive Date: 20080826
  Receipt Date: 20080821
  Transmission Date: 20090109
  Serious: Yes (Hospitalization)
  Sender: FDA-Public Use
  Company Number: A0734602A

PATIENT
  Age: 49 Year
  Sex: Male
  Weight: 90.9 kg

DRUGS (3)
  1. AVANDIA [Suspect]
     Indication: TYPE 2 DIABETES MELLITUS
     Dosage: 8MG TWICE PER DAY
     Route: 048
     Dates: start: 20010101, end: 20050101
  2. AVANDAMET [Suspect]
     Indication: TYPE 2 DIABETES MELLITUS
     Dosage: 8MG TWICE PER DAY
     Route: 048
     Dates: start: 20010101, end: 20050101
  3. GLUCOTROL [Concomitant]
     Dosage: 10MG TWICE PER DAY
     Dates: start: 20010101

REACTIONS (11)
  - ANXIETY [None]
  - CARDIAC FAILURE CONGESTIVE [None]
  - CARDIOVASCULAR DISORDER [None]
  - CHEST PAIN [None]
  - CONFUSIONAL STATE [None]
  - HEART INJURY [None]
  - MYOCARDIAL INFARCTION [None]
  - PAIN [None]
  - SWELLING [None]
  - TRANSIENT ISCHAEMIC ATTACK [None]
  - URTICARIA [None]
